FAERS Safety Report 7881515-0 (Version None)
Quarter: 2011Q4

REPORT INFORMATION
  Report Type: 
  Country: None (occurrence: None)
  Receive Date: 20111101
  Receipt Date: 20110525
  Transmission Date: 20120403
  Serious: No
  Sender: FDA-Public Use
  Company Number: US-AMGEN-USASP2011027242

PATIENT
  Age: 83 Year
  Sex: Female

DRUGS (2)
  1. ENBREL [Suspect]
     Indication: PSORIASIS
     Dosage: 50 MG, 2 TIMES/WK
     Dates: start: 20080101
  2. COUMADIN [Concomitant]

REACTIONS (7)
  - FALL [None]
  - MUSCLE STRAIN [None]
  - CARPAL TUNNEL SYNDROME [None]
  - CONTUSION [None]
  - CHONDROCALCINOSIS PYROPHOSPHATE [None]
  - CRYSTAL ARTHROPATHY [None]
  - HUMERUS FRACTURE [None]
